FAERS Safety Report 12481589 (Version 2)
Quarter: 2016Q4

REPORT INFORMATION
  Report Type: Report from Study
  Country: FR (occurrence: FR)
  Receive Date: 20160620
  Receipt Date: 20161212
  Transmission Date: 20170207
  Serious: Yes (Other)
  Sender: FDA-Public Use
  Company Number: FR-PFIZER INC-2016296622

PATIENT
  Age: 61 Year
  Sex: Female
  Weight: 50 kg

DRUGS (10)
  1. GEMTUZUMAB OZOGAMICIN [Suspect]
     Active Substance: GEMTUZUMAB OZOGAMICIN
     Dosage: CONSOLIDATION 1
     Dates: start: 20160615, end: 20160615
  2. ARACYTINE [Suspect]
     Active Substance: CYTARABINE
     Indication: ACUTE MYELOID LEUKAEMIA
     Dosage: 308 MG, DAILY FROM DAY 1 TO DAY7
     Route: 042
     Dates: start: 20160427
  3. ZELITREX [Concomitant]
     Active Substance: VALACYCLOVIR HYDROCHLORIDE
     Indication: PROPHYLAXIS
     Dosage: 500 MG, 2X/DAY
     Route: 048
     Dates: start: 20160422
  4. FLUCONAZOLE. [Concomitant]
     Active Substance: FLUCONAZOLE
     Indication: PROPHYLAXIS
     Dosage: 400 MG, 1X/DAY
     Route: 048
     Dates: start: 20160422
  5. GEMTUZUMAB OZOGAMICIN [Suspect]
     Active Substance: GEMTUZUMAB OZOGAMICIN
     Indication: ACUTE MYELOID LEUKAEMIA
     Dosage: 4.6 MG, DAILY ON DAY 1, DAY 4, DAY 7
     Route: 042
     Dates: start: 20160427
  6. DAUNORUBICIN [Concomitant]
     Active Substance: DAUNORUBICIN
     Indication: ACUTE MYELOID LEUKAEMIA
     Dosage: 92 MG, DAILY FROM DAY 1 TO DAY3
     Dates: start: 20160427, end: 20160429
  7. DAUNORUBICIN [Concomitant]
     Active Substance: DAUNORUBICIN
     Dosage: CONSOLIDATION 1
     Dates: start: 20160615, end: 20160619
  8. ARACYTINE [Suspect]
     Active Substance: CYTARABINE
     Dosage: CONSOLIDATION 1
     Dates: start: 20160615, end: 20160619
  9. PIPERACILLIN AND TAZOBACTAM [Concomitant]
     Active Substance: PIPERACILLIN SODIUM\TAZOBACTAM SODIUM
     Indication: PYREXIA
     Dosage: 4 MG, 3X/DAY
     Route: 042
     Dates: start: 20160423, end: 20160510
  10. GRANISETRON [Concomitant]
     Active Substance: GRANISETRON
     Indication: ANTIEMETIC SUPPORTIVE CARE
     Dosage: 6 MG, 1X/DAY
     Route: 042
     Dates: start: 20160427, end: 20160506

REACTIONS (1)
  - Dermatitis exfoliative [Recovered/Resolved]
